FAERS Safety Report 15295390 (Version 1)
Quarter: 2018Q4

REPORT INFORMATION
  Report Type: Spontaneous
  Country: DK (occurrence: DK)
  Receive Date: 20180820
  Receipt Date: 20180820
  Transmission Date: 20190204
  Serious: Yes (Hospitalization)
  Sender: FDA-Public Use
  Company Number: PHHY2018DK072259

PATIENT
  Age: 75 Year
  Sex: Male

DRUGS (17)
  1. IRON [Concomitant]
     Active Substance: IRON
     Indication: IRON DEFICIENCY
     Dosage: 200 MG, QD
     Route: 048
     Dates: start: 20131206
  2. MAREVAN [Concomitant]
     Active Substance: WARFARIN SODIUM
     Indication: THROMBOSIS PROPHYLAXIS
     Dosage: DOSAGE AFTER SCHEDULE
     Route: 048
  3. BICALUTAMID TEVA 150 MG FILMTABLETTEN [Interacting]
     Active Substance: BICALUTAMIDE
     Indication: PROSTATE CANCER
     Dosage: 75 MG, QD
     Route: 048
     Dates: start: 201712
  4. VITAMIN D [Concomitant]
     Active Substance: CHOLECALCIFEROL
     Indication: VITAMIN D DEFICIENCY
     Dosage: 2800 IU, QD
     Route: 048
     Dates: start: 20151127
  5. IMOCLONE [Concomitant]
     Active Substance: ZOPICLONE
     Indication: INSOMNIA
     Dosage: 7.5 MG, UNK (1 TABLET FOR NIGHT WHEN NEEDED. MAX. 1 TABLET PER DAY)
     Route: 048
  6. ADPORT [Suspect]
     Active Substance: TACROLIMUS
     Indication: KIDNEY TRANSPLANT REJECTION
     Dosage: 4 MG, QD
     Route: 048
     Dates: start: 201608
  7. FURIX [Concomitant]
     Active Substance: FUROSEMIDE
     Indication: DIURETIC THERAPY
     Dosage: 0.5 DF, UNK (BY NEED)
     Route: 048
  8. KALEORID [Concomitant]
     Active Substance: POTASSIUM CHLORIDE
     Indication: MINERAL SUPPLEMENTATION
     Dosage: 1500 MG, QD
     Route: 048
  9. MIMPARA [Concomitant]
     Active Substance: CINACALCET HYDROCHLORIDE
     Indication: PARATHYROID DISORDER
     Dosage: 30 MG, UNK (2 DAY)
     Route: 048
  10. UNIKALK BASIC [Concomitant]
     Indication: MINERAL SUPPLEMENTATION
     Dosage: 800 MG, QD
     Route: 048
     Dates: start: 20180124
  11. KININ [Concomitant]
     Active Substance: QUININE HYDROCHLORIDE
     Indication: MUSCLE SPASMS
     Dosage: 100 MG, QD
     Route: 048
     Dates: start: 20160329
  12. ARANESP [Concomitant]
     Active Substance: DARBEPOETIN ALFA
     Indication: ANAEMIA
     Dosage: 20 UG, QW
     Route: 065
  13. PAMOL [Concomitant]
     Active Substance: ACETAMINOPHEN
     Indication: PAIN
     Dosage: 1000 MG, UNK (2 TABLETS AS NEEDED. MAX. 8 TABLETS A DAY)
     Route: 048
  14. LAXOBERAL [Concomitant]
     Active Substance: SODIUM PICOSULFATE
     Indication: CONSTIPATION
     Dosage: 15 UG/LITRE, QD
     Route: 048
     Dates: start: 2016
  15. ZYCLARA [Concomitant]
     Active Substance: IMIQUIMOD
     Indication: ACTINIC KERATOSIS
     Dosage: 1 UG/LITRE, QD (DAILY FOR 14 DAYS, THEN 14 DAYS BREAK AND REPEAT)
     Route: 003
     Dates: start: 20161118
  16. MYFENAX [Concomitant]
     Active Substance: MYCOPHENOLATE MOFETIL
     Indication: IMMUNOSUPPRESSION
     Dosage: 500 MG, QD
     Route: 048
     Dates: start: 20161103
  17. EZETROL [Concomitant]
     Active Substance: EZETIMIBE
     Indication: HYPERCHOLESTEROLAEMIA
     Dosage: 10 MG, QD
     Route: 048
     Dates: start: 20150922

REACTIONS (5)
  - Drug interaction [Not Recovered/Not Resolved]
  - Drug level increased [Not Recovered/Not Resolved]
  - Toxicity to various agents [Unknown]
  - Blood creatinine increased [Unknown]
  - Renal impairment [Unknown]

NARRATIVE: CASE EVENT DATE: 201712
